FAERS Safety Report 8130356-8 (Version None)
Quarter: 2012Q1

REPORT INFORMATION
  Report Type: 
  Country: None (occurrence: None)
  Receive Date: 20120210
  Receipt Date: 20120206
  Transmission Date: 20120608
  Serious: Yes (Other)
  Sender: FDA-Public Use
  Company Number: PHHY2012US010345

PATIENT

DRUGS (4)
  1. GONADOTROPIN RELEASING HORMONE ANALOGUES [Concomitant]
  2. LEUPROLIDE ACETATE [Concomitant]
     Dosage: 1 MG, UNK
  3. ESTRADIOL [Suspect]
     Dosage: EVERY OTHER DAY
     Route: 062
  4. PROGESTERONE [Concomitant]
     Dosage: 50 MG, DAILY
     Route: 030

REACTIONS (1)
  - OVARIAN HYPERSTIMULATION SYNDROME [None]
